FAERS Safety Report 10220096 (Version 1)
Quarter: 2014Q1

REPORT INFORMATION
  Report Type: Spontaneous
  Country: US (occurrence: None)
  Receive Date: 20140306
  Receipt Date: 20140306
  Transmission Date: 20141002
  Serious: Yes (Other)
  Sender: FDA-Public Use
  Company Number: 163-21880-13054448

PATIENT
  Age: 29 Year
  Sex: Female

DRUGS (7)
  1. REVLIMID (LENALIDOMIDE) (25 MILLIGRAM, CAPSULES) [Suspect]
     Indication: PLASMA CELL MYELOMA
     Route: 048
     Dates: start: 201301
  2. FAMCICLOVIR (FAMCICLOVIR) (TABLETS) [Concomitant]
  3. DEXAMETHASONE (DEXAMETHASONE) (TABLETS) [Concomitant]
  4. VICODIN (VICODIN) (TABLETS) [Concomitant]
  5. LORAZEPAM (LORAZEPAM) (TABLETS) [Concomitant]
  6. PROMETHAZINE (PROMETHAZINE) (TABLETS) [Concomitant]
  7. GABAPENTIN (GABAPENTIN) (CAPSULES) [Concomitant]

REACTIONS (3)
  - Thrombosis [None]
  - Contusion [None]
  - Rhinorrhoea [None]
